FAERS Safety Report 8849750 (Version 1)
Quarter: 2012Q4

REPORT INFORMATION
  Report Type: Report from Study
  Country: BY (occurrence: BY)
  Receive Date: 20121019
  Receipt Date: 20121019
  Transmission Date: 20130627
  Serious: Yes (Other)
  Sender: FDA-Public Use
  Company Number: PHHO2012BY015071

PATIENT
  Age: 53 Year
  Sex: Female
  Weight: 44 kg

DRUGS (5)
  1. CGS 20267 [Suspect]
     Indication: BREAST CANCER
     Dosage: 2.5 mg, QD
     Route: 048
     Dates: start: 20100318
  2. FARMORUBICIN [Concomitant]
     Indication: BREAST CANCER
     Dosage: 140 mg, UNK
     Route: 042
     Dates: start: 20071004, end: 20080116
  3. 5-FLUOROURACIL [Concomitant]
     Indication: BREAST CANCER
     Dosage: 700 mg, UNK
     Route: 042
     Dates: start: 20071004, end: 20080116
  4. CYCLOPHOSPHAMIDE [Concomitant]
     Indication: BREAST CANCER
     Dosage: 700 mg, UNK
     Route: 042
     Dates: start: 20071004, end: 20080116
  5. NOLVADEX [Concomitant]
     Indication: BREAST CANCER
     Dosage: 20 mg, QD
     Route: 048
     Dates: start: 20080318

REACTIONS (1)
  - Adenocarcinoma gastric [Not Recovered/Not Resolved]
